FAERS Safety Report 4299645-1 (Version None)
Quarter: 2004Q1

REPORT INFORMATION
  Report Type: 
  Country: None (occurrence: None)
  Receive Date: 20040217
  Receipt Date: 20040217
  Transmission Date: 20041129
  Serious: Yes (Hospitalization)
  Sender: FDA-Public Use
  Company Number: None

PATIENT
  Age: 57 Year
  Sex: Male
  Weight: 215.6 kg

DRUGS (12)
  1. TAXOTERE [Suspect]
     Dosage: 20MG/M2
     Dates: start: 20040105
  2. TAXOTERE [Suspect]
     Dosage: 20MG/M2
     Dates: start: 20040112
  3. TAXOTERE [Suspect]
     Dosage: 20MG/M2
     Dates: start: 20040120
  4. TAXOTERE [Suspect]
     Dosage: 20MG/M2
     Dates: start: 20040126
  5. TAXOTERE [Suspect]
     Dosage: 20MG/M2
     Dates: start: 20040202
  6. AMIFOSTINE [Suspect]
     Dosage: 500 MG
  7. TENORMIN [Concomitant]
  8. ZOFRAN [Concomitant]
  9. TYLENOL [Concomitant]
  10. ROBITUSSIN [Concomitant]
  11. FENTANY [Concomitant]
  12. LORTAB [Concomitant]

REACTIONS (2)
  - CATHETER SEPSIS [None]
  - STAPHYLOCOCCAL INFECTION [None]
